FAERS Safety Report 16109589 (Version 1)
Quarter: 2019Q1

REPORT INFORMATION
  Report Type: Spontaneous
  Country: FR (occurrence: FR)
  Receive Date: 20190324
  Receipt Date: 20190324
  Transmission Date: 20190418
  Serious: Yes (Hospitalization)
  Sender: FDA-Public Use
  Company Number: FR-SA-2019SA075848

PATIENT
  Age: 7 Year
  Sex: Female
  Weight: 29 kg

DRUGS (5)
  1. FLUDARA [Suspect]
     Active Substance: FLUDARABINE PHOSPHATE
     Indication: BONE MARROW CONDITIONING REGIMEN
     Dosage: 42.5 MG, QD
     Route: 041
     Dates: start: 20190201, end: 20190204
  2. BACTRIM [Concomitant]
     Active Substance: SULFAMETHOXAZOLE\TRIMETHOPRIM
     Dosage: UNK, UNK
  3. CAMPATH [Suspect]
     Active Substance: ALEMTUZUMAB
     Indication: BONE MARROW CONDITIONING REGIMEN
     Dosage: 9 MG, QD
     Route: 041
     Dates: start: 20190127, end: 20190128
  4. RIXATHON [Suspect]
     Active Substance: RITUXIMAB
     Indication: BONE MARROW CONDITIONING REGIMEN
     Dosage: 400 MG, TOTAL
     Route: 041
     Dates: start: 20190126, end: 20190126
  5. BUSULFAN FRESENIUS KABI [Concomitant]
     Active Substance: BUSULFAN
     Dosage: UNK, UNK

REACTIONS (1)
  - Serum sickness-like reaction [Recovered/Resolved]

NARRATIVE: CASE EVENT DATE: 20190203
